FAERS Safety Report 5154031-7 (Version None)
Quarter: 2006Q4

REPORT INFORMATION
  Report Type: 
  Country: None (occurrence: None)
  Receive Date: 20061120
  Receipt Date: 20061114
  Transmission Date: 20070319
  Serious: Yes (Hospitalization)
  Sender: FDA-Public Use
  Company Number: CZ-GLAXOSMITHKLINE-B0447181A

PATIENT
  Age: 16 Year
  Sex: Male

DRUGS (3)
  1. CEFUROXIME [Suspect]
     Indication: BRONCHOPNEUMONIA
     Dosage: 250MG SEE DOSAGE TEXT
     Route: 048
     Dates: start: 20061006, end: 20061011
  2. PARALEN [Concomitant]
     Dates: start: 20061006
  3. AMBROXOL [Concomitant]
     Dates: start: 20061009

REACTIONS (1)
  - DERMATITIS ALLERGIC [None]
